FAERS Safety Report 22702134 (Version 4)
Quarter: 2023Q4

REPORT INFORMATION
  Report Type: Spontaneous
  Country: BR (occurrence: BR)
  Receive Date: 20230713
  Receipt Date: 20231102
  Transmission Date: 20240110
  Serious: Yes (Other)
  Sender: FDA-Public Use
  Company Number: BR-002147023-NVSC2023BR153554

PATIENT
  Age: 30 Year
  Sex: Female
  Weight: 70 kg

DRUGS (12)
  1. XOLAIR [Suspect]
     Active Substance: OMALIZUMAB
     Indication: Chronic spontaneous urticaria
     Route: 058
     Dates: start: 202302
  2. XOLAIR [Suspect]
     Active Substance: OMALIZUMAB
     Dosage: 3
     Route: 058
  3. XOLAIR [Suspect]
     Active Substance: OMALIZUMAB
     Route: 058
  4. XOLAIR [Suspect]
     Active Substance: OMALIZUMAB
     Route: 058
  5. XOLAIR [Suspect]
     Active Substance: OMALIZUMAB
     Route: 058
  6. XOLAIR [Suspect]
     Active Substance: OMALIZUMAB
     Dosage: 150 MG, QMO , FOR 6 MONTHS (PERSONALIZED DOSE),
     Route: 058
  7. XOLAIR [Suspect]
     Active Substance: OMALIZUMAB
     Dosage: 2 AMPOULES OF 150MG
     Route: 058
     Dates: start: 20230222
  8. XOLAIR [Suspect]
     Active Substance: OMALIZUMAB
     Route: 058
     Dates: start: 20230330
  9. XOLAIR [Suspect]
     Active Substance: OMALIZUMAB
     Route: 058
     Dates: start: 20230427
  10. XOLAIR [Suspect]
     Active Substance: OMALIZUMAB
     Route: 058
     Dates: start: 20230525
  11. XOLAIR [Suspect]
     Active Substance: OMALIZUMAB
     Route: 058
     Dates: start: 20230622
  12. XOLAIR [Suspect]
     Active Substance: OMALIZUMAB
     Route: 058
     Dates: start: 20230720

REACTIONS (17)
  - Pruritus [Unknown]
  - Laryngeal oedema [Not Recovered/Not Resolved]
  - Oropharyngeal pain [Unknown]
  - Mouth swelling [Unknown]
  - Dysphonia [Unknown]
  - Brain fog [Not Recovered/Not Resolved]
  - Blood pressure increased [Unknown]
  - Swelling [Unknown]
  - Dry throat [Unknown]
  - Weight increased [Not Recovered/Not Resolved]
  - Influenza like illness [Unknown]
  - Headache [Not Recovered/Not Resolved]
  - Dizziness [Unknown]
  - Infection [Not Recovered/Not Resolved]
  - Urticaria [Unknown]
  - Application site pain [Unknown]
  - Application site swelling [Unknown]

NARRATIVE: CASE EVENT DATE: 20230201
